FAERS Safety Report 12924118 (Version 1)
Quarter: 2016Q4

REPORT INFORMATION
  Report Type: Spontaneous
  Country: US (occurrence: US)
  Receive Date: 20161109
  Receipt Date: 20161109
  Transmission Date: 20170207
  Serious: Yes (Hospitalization)
  Sender: FDA-Public Use
  Company Number: None

PATIENT
  Age: 67 Year
  Sex: Female
  Weight: 63.5 kg

DRUGS (1)
  1. VANCOMYCIN [Suspect]
     Active Substance: VANCOMYCIN
     Indication: CELLULITIS
     Dosage: 1500MG; EVERY 12 HOURS; INTRAVENOUS OVER 180 MIN
     Route: 042
     Dates: start: 20160212, end: 20160215

REACTIONS (6)
  - Ocular hyperaemia [None]
  - Infusion related reaction [None]
  - Atrial fibrillation [None]
  - Swelling face [None]
  - Nasal congestion [None]
  - Dysphagia [None]

NARRATIVE: CASE EVENT DATE: 20160215
